FAERS Safety Report 12467963 (Version 4)
Quarter: 2016Q3

REPORT INFORMATION
  Report Type: Report from Study
  Country: JP (occurrence: JP)
  Receive Date: 20160615
  Receipt Date: 20160802
  Transmission Date: 20161109
  Serious: Yes (Hospitalization)
  Sender: FDA-Public Use
  Company Number: JP-B.I. PHARMACEUTICALS,INC./RIDGEFIELD-2016-BI-36742BI

PATIENT
  Age: 90 Year
  Sex: Male
  Weight: 56 kg

DRUGS (9)
  1. TIOTROPIUM BROMIDE [Suspect]
     Active Substance: TIOTROPIUM BROMIDE
     Indication: CHRONIC OBSTRUCTIVE PULMONARY DISEASE
     Dosage: 5 MCG
     Route: 055
  2. RESTAMIN [Concomitant]
     Active Substance: DIPHENHYDRAMINE
     Indication: PRURITUS
     Dosage: STRENGTH: 1%
     Route: 062
     Dates: start: 20070817
  3. SALBUTAMOL [Concomitant]
     Active Substance: ALBUTEROL
     Indication: DRUG THERAPY
     Dosage: 4 PUF
     Route: 055
     Dates: start: 20160420, end: 20160420
  4. TIOTROPIUM BROMIDE+OLODATEROL [Suspect]
     Active Substance: OLODATEROL\TIOTROPIUM BROMIDE
     Indication: CHRONIC OBSTRUCTIVE PULMONARY DISEASE
     Dosage: 5 MCG
     Route: 055
     Dates: start: 20160510
  5. AMLODIN [Concomitant]
     Active Substance: AMLODIPINE BESYLATE
     Indication: HYPERTENSION
     Dosage: 2.5 MG
     Route: 048
     Dates: start: 20021021
  6. RECALBON [Concomitant]
     Active Substance: MINODRONIC ACID
     Indication: OSTEOPOROSIS
     Dosage: 50 MG
     Route: 048
     Dates: start: 20120511
  7. CHALDOL [Concomitant]
     Indication: CONSTIPATION
     Dosage: 10 ANZ
     Route: 048
     Dates: start: 20070817
  8. TRAZENTA [Concomitant]
     Active Substance: LINAGLIPTIN
     Indication: DIABETES MELLITUS
     Dosage: 5 MG
     Route: 048
  9. SALBUTAMOL [Concomitant]
     Active Substance: ALBUTEROL
     Indication: SPIROMETRY
     Route: 055
     Dates: start: 20160324

REACTIONS (3)
  - Disuse syndrome [Recovered/Resolved]
  - Pleurisy [Recovered/Resolved]
  - Pneumonia [Recovered/Resolved]

NARRATIVE: CASE EVENT DATE: 20160605
